FAERS Safety Report 6443440-1 (Version None)
Quarter: 2009Q4

REPORT INFORMATION
  Report Type: 
  Country: None (occurrence: None)
  Receive Date: 20091117
  Receipt Date: 20091102
  Transmission Date: 20100525
  Serious: Yes (Other)
  Sender: FDA-Public Use
  Company Number: CA-GENENTECH-294071

PATIENT
  Sex: Female
  Weight: 95 kg

DRUGS (1)
  1. XOLAIR [Suspect]
     Indication: ASTHMA
     Dosage: 150 MG, 1/MONTH
     Route: 058
     Dates: start: 20091029

REACTIONS (7)
  - DYSPNOEA EXERTIONAL [None]
  - EYE SWELLING [None]
  - HEADACHE [None]
  - OEDEMA MOUTH [None]
  - OEDEMA PERIPHERAL [None]
  - STOMATITIS [None]
  - URINARY TRACT INFECTION [None]
